FAERS Safety Report 4553847-5 (Version None)
Quarter: 2005Q1

REPORT INFORMATION
  Report Type: 
  Country: None (occurrence: None)
  Receive Date: 20050110
  Receipt Date: 20050110
  Transmission Date: 20050727
  Serious: Yes (Other)
  Sender: FDA-Public Use
  Company Number: None

PATIENT
  Age: 63 Year
  Sex: Male
  Weight: 91.173 kg

DRUGS (1)
  1. LEVAQUIN [Suspect]
     Indication: OTITIS MEDIA
     Dosage: ONE  DAY  ORAL
     Route: 048
     Dates: start: 20041203, end: 20041209

REACTIONS (7)
  - ANOREXIA [None]
  - ASTHENIA [None]
  - GASTROINTESTINAL DISORDER [None]
  - NAUSEA [None]
  - SENSATION OF FOREIGN BODY [None]
  - TREMOR [None]
  - WEIGHT DECREASED [None]
